FAERS Safety Report 10247812 (Version 2)
Quarter: 2014Q3

REPORT INFORMATION
  Report Type: Spontaneous
  Country: IT (occurrence: IT)
  Receive Date: 20140619
  Receipt Date: 20140805
  Transmission Date: 20150326
  Serious: Yes (Other)
  Sender: FDA-Public Use
  Company Number: IT-B.I. PHARMACEUTICALS,INC./RIDGEFIELD-2014-BI-27358IT

PATIENT
  Age: 86 Year
  Sex: Female

DRUGS (5)
  1. PRADAXA [Suspect]
     Active Substance: DABIGATRAN ETEXILATE MESYLATE
     Indication: THROMBOSIS PROPHYLAXIS
     Route: 048
     Dates: start: 20140325, end: 20140527
  2. FUROSEMIDE. [Concomitant]
     Active Substance: FUROSEMIDE
     Route: 065
  3. TRIATEC [Concomitant]
     Active Substance: RAMIPRIL
     Route: 065
  4. LOBIVON [Concomitant]
     Active Substance: NEBIVOLOL HYDROCHLORIDE
     Route: 065
  5. LANOXIN [Concomitant]
     Active Substance: DIGOXIN
     Route: 065

REACTIONS (6)
  - Epistaxis [Recovered/Resolved]
  - Hair colour changes [Recovered/Resolved]
  - Rectal haemorrhage [Recovered/Resolved]
  - Pruritus generalised [Recovered/Resolved]
  - Urinary bladder haemorrhage [Recovered/Resolved]
  - Vaginal haemorrhage [Recovered/Resolved]

NARRATIVE: CASE EVENT DATE: 20140520
